FAERS Safety Report 7690016-4 (Version None)
Quarter: 2011Q3

REPORT INFORMATION
  Report Type: 
  Country: None (occurrence: None)
  Receive Date: 20110818
  Receipt Date: 20110812
  Transmission Date: 20111222
  Serious: Yes (Other)
  Sender: FDA-Public Use
  Company Number: DE-BRISTOL-MYERS SQUIBB COMPANY-15972169

PATIENT
  Age: 73 Year
  Sex: Female

DRUGS (1)
  1. HYDROXYUREA [Suspect]
     Indication: POLYCYTHAEMIA VERA
     Dosage: INITIAL 2 X 500, FIVE DAYS A WEEK, CURRENT DOSE: 2 X 1000MG/DAY.
     Route: 048
     Dates: start: 20030201

REACTIONS (3)
  - TOXIC SKIN ERUPTION [None]
  - SPLENOMEGALY [None]
  - LEUKOCYTOSIS [None]
